FAERS Safety Report 18664161 (Version 1)
Quarter: 2020Q4

REPORT INFORMATION
  Report Type: Spontaneous
  Country: US (occurrence: US)
  Receive Date: 20201225
  Receipt Date: 20201225
  Transmission Date: 20210114
  Serious: No
  Sender: FDA-Public Use
  Company Number: US-LUPIN PHARMACEUTICALS INC.-2020-08766

PATIENT
  Age: 32 Year
  Sex: Male
  Weight: 81.63 kg

DRUGS (3)
  1. ZYRTEC [Concomitant]
     Active Substance: CETIRIZINE HYDROCHLORIDE
     Indication: PRODUCT USED FOR UNKNOWN INDICATION
     Dosage: UNK
     Route: 048
  2. VALACYCLOVIR [Concomitant]
     Active Substance: VALACYCLOVIR HYDROCHLORIDE
     Indication: PRODUCT USED FOR UNKNOWN INDICATION
     Dosage: UNK
     Route: 048
  3. TESTOSTERONE GEL 1.62% [Suspect]
     Active Substance: TESTOSTERONE
     Indication: TRANSGENDER OPERATION
     Dosage: UNK UNK, QD (1 PUMP DAILY)
     Route: 061
     Dates: start: 202006

REACTIONS (4)
  - Drug delivery system issue [Unknown]
  - Device issue [Unknown]
  - Incorrect dose administered [Unknown]
  - No adverse event [Unknown]

NARRATIVE: CASE EVENT DATE: 20201103
